FAERS Safety Report 19239544 (Version 1)
Quarter: 2021Q2

REPORT INFORMATION
  Report Type: Spontaneous
  Country: IT (occurrence: IT)
  Receive Date: 20210510
  Receipt Date: 20210510
  Transmission Date: 20210717
  Serious: Yes (Hospitalization, Other)
  Sender: FDA-Public Use
  Company Number: IT-VELOXIS PHARMACEUTICALS-2021VELIT-000313

PATIENT
  Age: 71 Year
  Sex: Male

DRUGS (8)
  1. PREDNISONE. [Suspect]
     Active Substance: PREDNISONE
     Indication: IMMUNOSUPPRESSION
     Dosage: 5 MILLIGRAM
     Route: 065
  2. PREDNISONE. [Suspect]
     Active Substance: PREDNISONE
     Dosage: UNK
  3. DEXAMETHASONE. [Suspect]
     Active Substance: DEXAMETHASONE
     Dosage: DOSE DECREASED
  4. MYCOPHENOLATE [Suspect]
     Active Substance: MYCOPHENOLIC ACID
     Indication: IMMUNOSUPPRESSION
     Dosage: UNK
     Route: 065
  5. BASILIXIMAB [Suspect]
     Active Substance: BASILIXIMAB
     Indication: IMMUNOSUPPRESSION
     Dosage: UNK
     Route: 065
  6. DEXAMETHASONE. [Suspect]
     Active Substance: DEXAMETHASONE
     Indication: IMMUNOSUPPRESSION
     Dosage: 20 MILLIGRAM, QD
  7. ENVARSUS XR [Suspect]
     Active Substance: TACROLIMUS
     Indication: IMMUNOSUPPRESSION
     Dosage: UNK
     Route: 065
  8. MYCOPHENOLATE [Suspect]
     Active Substance: MYCOPHENOLIC ACID
     Dosage: DOSE REDUCED
     Route: 065

REACTIONS (13)
  - Pathogen resistance [Unknown]
  - Hyponatraemia [Unknown]
  - Urinary retention [Unknown]
  - Dehydration [Unknown]
  - Hyperkalaemia [Unknown]
  - Visceral leishmaniasis [Recovered/Resolved]
  - Disseminated intravascular coagulation [Recovered/Resolved]
  - Hypoalbuminaemia [Unknown]
  - Renal impairment [Unknown]
  - Pleural effusion [Unknown]
  - Neurological decompensation [Unknown]
  - Escherichia urinary tract infection [Unknown]
  - Hypergammaglobulinaemia [Unknown]
